FAERS Safety Report 4638336-1 (Version None)
Quarter: 2005Q2

REPORT INFORMATION
  Report Type: 
  Country: None (occurrence: None)
  Receive Date: 20050415
  Receipt Date: 20050407
  Transmission Date: 20051028
  Serious: Yes (Other)
  Sender: FDA-Public Use
  Company Number: CAP05000026

PATIENT
  Age: 61 Year
  Sex: Female

DRUGS (1)
  1. MACROBID [Suspect]
     Indication: PROPHYLAXIS
     Dosage: 100 MG DAILY, ORAL
     Route: 048
     Dates: start: 20040401, end: 20040701

REACTIONS (2)
  - MALIGNANT PLEURAL EFFUSION [None]
  - METASTASES TO LUNG [None]
